FAERS Safety Report 8337742 (Version 3)
Quarter: 2014Q1

REPORT INFORMATION
  Report Type: Report from Study
  Country: PL (occurrence: PL)
  Receive Date: 20120116
  Receipt Date: 20140131
  Transmission Date: 20141002
  Serious: Yes (Other)
  Sender: FDA-Public Use
  Company Number: PL-SHIRE-SPV1-2012-00030

PATIENT
  Age: 14 Year
  Sex: Male
  Weight: 26.9 kg

DRUGS (3)
  1. ELAPRASE [Suspect]
     Indication: MUCOPOLYSACCHARIDOSIS II
     Dosage: 0.5 MG/KG, 1X/WEEK
     Route: 041
     Dates: start: 20090911
  2. ELAPRASE [Suspect]
     Dosage: UNK, UNKNOWN
     Route: 041
     Dates: start: 20100923
  3. GENISTEIN [Concomitant]
     Indication: CARDIOVASCULAR DISORDER
     Dosage: UNK, UNKNOWN
     Route: 065
     Dates: start: 20080312

REACTIONS (2)
  - Posturing [Recovered/Resolved]
  - Infusion related reaction [Recovered/Resolved]
